FAERS Safety Report 22233827 (Version 1)
Quarter: 2023Q2

REPORT INFORMATION
  Report Type: Spontaneous
  Country: US (occurrence: None)
  Receive Date: 20230420
  Receipt Date: 20230420
  Transmission Date: 20230722
  Serious: No
  Sender: FDA-Public Use
  Company Number: US-ROCHE-3126189

PATIENT
  Sex: Female

DRUGS (1)
  1. ESBRIET [Suspect]
     Active Substance: PIRFENIDONE
     Indication: Interstitial lung disease
     Dosage: TAKE 1 CAPSULE A DAY THREE TIMES A DAY FOR 7 DAYS, THEN 2 CAPSULES THREE TIMES A DAY FOR 7 DAYS, THE
     Route: 048
     Dates: start: 202205

REACTIONS (3)
  - Migraine [Unknown]
  - Back pain [Unknown]
  - Nausea [Unknown]
